FAERS Safety Report 8770240 (Version 2)
Quarter: 2012Q4

REPORT INFORMATION
  Report Type: 
  Country: US (occurrence: US)
  Receive Date: 20120906
  Receipt Date: 20121003
  Transmission Date: 20130627
  Serious: Yes (Other)
  Sender: FDA-Public Use
  Company Number: US-PFIZER INC-2012215039

PATIENT
  Age: 33 Year
  Sex: Female

DRUGS (9)
  1. VENLAFAXINE HYDROCHLORIDE [Suspect]
     Indication: DEPRESSION
     Dosage: 300 mg/day
     Route: 065
  2. SERTRALINE HCL [Interacting]
     Indication: DEPRESSION
     Dosage: 50 mg/day
     Route: 065
  3. LAMOTRIGINE [Suspect]
     Indication: EPILEPSY
     Dosage: 200 mg/day
     Route: 065
  4. LAMOTRIGINE [Suspect]
     Dosage: 300 mg/day
     Route: 065
  5. LAMOTRIGINE [Suspect]
     Dosage: 200 mg/day
     Route: 065
  6. TRAMADOL [Interacting]
     Indication: NEURALGIA
     Dosage: 300 to 400 mg/d (prescribed)
     Route: 065
  7. TRAMADOL [Interacting]
     Dosage: 600-800 mg/day (self-medicated)
     Route: 065
  8. OXCARBAZEPINE [Suspect]
     Indication: EPILEPSY
     Dosage: UNK
     Route: 065
  9. PHENYTOIN [Concomitant]
     Indication: EPILEPSY
     Dosage: 200 mg/day
     Route: 065

REACTIONS (3)
  - Drug interaction [Recovered/Resolved]
  - Drug abuse [Recovered/Resolved]
  - Convulsion [Recovered/Resolved]
